FAERS Safety Report 6284095-9 (Version None)
Quarter: 2009Q3

REPORT INFORMATION
  Report Type: 
  Country: None (occurrence: None)
  Receive Date: 20090723
  Receipt Date: 20090714
  Transmission Date: 20100115
  Serious: Yes (Hospitalization, Other)
  Sender: FDA-Public Use
  Company Number: 2009SP015666

PATIENT
  Age: 10 Month
  Sex: Female

DRUGS (2)
  1. CLARITIN [Suspect]
     Indication: RHINORRHOEA
     Dosage: 2.5 MG;BID;PO
     Route: 048
     Dates: start: 20090601
  2. AMOXICILLIN [Suspect]
     Indication: EAR INFECTION
     Dates: start: 20090628

REACTIONS (1)
  - CONVULSION [None]
